FAERS Safety Report 12901169 (Version 3)
Quarter: 2016Q4

REPORT INFORMATION
  Report Type: Spontaneous
  Country: US (occurrence: US)
  Receive Date: 20161101
  Receipt Date: 20161216
  Transmission Date: 20170207
  Serious: Yes (Other)
  Sender: FDA-Public Use
  Company Number: US-ALLERGAN-1674129US

PATIENT
  Age: 55 Year
  Sex: Female

DRUGS (2)
  1. BOTOX [Suspect]
     Active Substance: ONABOTULINUMTOXINA
     Indication: MIGRAINE
     Dosage: UNK UNK, SINGLE
     Route: 030
     Dates: start: 20150128, end: 20150128
  2. SUMATRIPTAN. [Concomitant]
     Active Substance: SUMATRIPTAN
     Indication: MIGRAINE
     Dosage: UNK

REACTIONS (11)
  - Migraine [Not Recovered/Not Resolved]
  - Accident [Unknown]
  - Hypersensitivity [Unknown]
  - Wrist fracture [Unknown]
  - Vision blurred [Not Recovered/Not Resolved]
  - Skin disorder [Recovered/Resolved]
  - Brow ptosis [Not Recovered/Not Resolved]
  - Headache [Not Recovered/Not Resolved]
  - Burning sensation [Recovered/Resolved]
  - Eyelid ptosis [Not Recovered/Not Resolved]
  - Eyelid oedema [Not Recovered/Not Resolved]
